FAERS Safety Report 14199353 (Version 1)
Quarter: 2017Q4

REPORT INFORMATION
  Report Type: Spontaneous
  Country: US (occurrence: None)
  Receive Date: 20171116
  Receipt Date: 20171116
  Transmission Date: 20180321
  Serious: No
  Sender: FDA-Public Use
  Company Number: None

PATIENT
  Sex: Male

DRUGS (1)
  1. NINLARO [Suspect]
     Active Substance: IXAZOMIB CITRATE
     Indication: PLASMA CELL MYELOMA
     Dosage: FREQUENCY - QW X 3 WEEKS, THEN 1 WEEK OFF
     Route: 048
     Dates: start: 20170708

REACTIONS (2)
  - Burning sensation [None]
  - Paraesthesia [None]
